FAERS Safety Report 10063613 (Version 2)
Quarter: 2014Q2

REPORT INFORMATION
  Report Type: Spontaneous
  Country: JP (occurrence: JP)
  Receive Date: 20140407
  Receipt Date: 20140407
  Transmission Date: 20141212
  Serious: Yes (Hospitalization, Other)
  Sender: FDA-Public Use
  Company Number: PHHY2014JP028889

PATIENT
  Age: 80 Year
  Sex: Female

DRUGS (1)
  1. NEORAL [Suspect]
     Indication: MYASTHENIA GRAVIS
     Dosage: 100 MG, UNK
     Route: 048

REACTIONS (2)
  - Cystitis haemorrhagic [Recovered/Resolved]
  - Low density lipoprotein increased [Recovered/Resolved]
